FAERS Safety Report 8446259-5 (Version None)
Quarter: 2012Q2

REPORT INFORMATION
  Report Type: 
  Country: None (occurrence: None)
  Receive Date: 20120618
  Receipt Date: 20120608
  Transmission Date: 20120825
  Serious: Yes (Other)
  Sender: FDA-Public Use
  Company Number: GB-PFIZER INC-2012139529

PATIENT
  Age: 66 Year
  Sex: Male

DRUGS (5)
  1. ACETYLSALICYLIC ACID [Concomitant]
     Dosage: 75 MG, 1X/DAY
  2. SIMVASTATIN [Concomitant]
  3. CLOPIDOGREL [Concomitant]
  4. RAMIPRIL [Suspect]
     Indication: HYPERTENSION
     Dosage: 2.5 (UNITS: UNSPECIFIED), DAILY
     Route: 048
     Dates: start: 20120216, end: 20120508
  5. ADIZEM-XL [Concomitant]

REACTIONS (5)
  - DERMATITIS BULLOUS [None]
  - SWOLLEN TONGUE [None]
  - WITHDRAWAL SYNDROME [None]
  - DRY SKIN [None]
  - ANGIOEDEMA [None]
